FAERS Safety Report 11008105 (Version 2)
Quarter: 2015Q2

REPORT INFORMATION
  Report Type: Spontaneous
  Country: US (occurrence: US)
  Receive Date: 20150410
  Receipt Date: 20150503
  Transmission Date: 20150821
  Serious: No
  Sender: FDA-Public Use
  Company Number: US-ASTRAZENECA-2015SE32037

PATIENT
  Age: 15002 Day
  Sex: Female
  Weight: 116.1 kg

DRUGS (4)
  1. SYMBICORT [Suspect]
     Active Substance: BUDESONIDE\FORMOTEROL FUMARATE DIHYDRATE
     Indication: CHRONIC OBSTRUCTIVE PULMONARY DISEASE
     Dosage: 160/4.5 MG 2 PUFFS IN THE PM ; TWO TIMES A DAY
     Route: 055
     Dates: start: 2014
  2. SYMBICORT [Suspect]
     Active Substance: BUDESONIDE\FORMOTEROL FUMARATE DIHYDRATE
     Indication: CHRONIC OBSTRUCTIVE PULMONARY DISEASE
     Dosage: 160/4.5 MG 2 PUFFS IN THE AM ; TWO TIMES A DAY
     Route: 055
     Dates: start: 2014
  3. SPIRIVA [Concomitant]
     Active Substance: TIOTROPIUM BROMIDE MONOHYDRATE
     Indication: CHRONIC OBSTRUCTIVE PULMONARY DISEASE
     Dosage: DAILY
     Route: 065
     Dates: start: 201410
  4. CODEINE [Concomitant]
     Active Substance: CODEINE

REACTIONS (3)
  - Dysphonia [Unknown]
  - Weight increased [Unknown]
  - Decreased activity [Unknown]

NARRATIVE: CASE EVENT DATE: 20150422
